FAERS Safety Report 7776401-0 (Version None)
Quarter: 2011Q3

REPORT INFORMATION
  Report Type: 
  Country: None (occurrence: None)
  Receive Date: 20110926
  Receipt Date: 20110920
  Transmission Date: 20111222
  Serious: Yes (Hospitalization)
  Sender: FDA-Public Use
  Company Number: PL-PFIZER INC-2010106325

PATIENT
  Age: 12 Year
  Sex: Female
  Weight: 36.9 kg

DRUGS (3)
  1. SILDENAFIL CITRATE [Suspect]
     Indication: PULMONARY ARTERIAL HYPERTENSION
     Dosage: 10 MG, TID
     Route: 048
     Dates: start: 20060103
  2. VEROSPIRON [Concomitant]
     Indication: PULMONARY ARTERIAL HYPERTENSION
  3. VEROSPIRON [Concomitant]
     Indication: VENTRICULAR SEPTAL DEFECT
     Dosage: 25 MG, 2X/DAY
     Route: 048
     Dates: start: 20050801

REACTIONS (1)
  - ENTEROCOLITIS [None]
